FAERS Safety Report 8376698-2 (Version None)
Quarter: 2012Q2

REPORT INFORMATION
  Report Type: 
  Country: None (occurrence: None)
  Receive Date: 20120518
  Receipt Date: 20120508
  Transmission Date: 20120825
  Serious: Yes (Hospitalization)
  Sender: FDA-Public Use
  Company Number: DKLU1079537

PATIENT
  Age: 45 Year
  Sex: Female

DRUGS (2)
  1. SABRIL [Suspect]
     Indication: EPILEPSY
     Dosage: 3 G GRAM(S), 1 IN 1 D, ORAL
     Route: 048
     Dates: start: 20111011
  2. SABRIL [Suspect]
     Indication: COMPLEX PARTIAL SEIZURES
     Dosage: 3 G GRAM(S), 1 IN 1 D, ORAL
     Route: 048
     Dates: start: 20111011

REACTIONS (2)
  - UNEVALUABLE EVENT [None]
  - MENTAL DISORDER [None]
